FAERS Safety Report 13439490 (Version 2)
Quarter: 2018Q4

REPORT INFORMATION
  Report Type: Report from Study
  Country: US (occurrence: US)
  Receive Date: 20170413
  Receipt Date: 20181017
  Transmission Date: 20190204
  Serious: Yes (Other)
  Sender: FDA-Public Use
  Company Number: US-AMGEN-USASL2017054528

PATIENT
  Age: 68 Year
  Sex: Male

DRUGS (3)
  1. ENBREL [Suspect]
     Active Substance: ETANERCEPT
     Dosage: UNK
     Route: 065
  2. ENBREL [Suspect]
     Active Substance: ETANERCEPT
     Dosage: 50 MG, Q2WK
     Route: 065
  3. ENBREL [Suspect]
     Active Substance: ETANERCEPT
     Indication: PSORIASIS
     Dosage: UNK
     Route: 065

REACTIONS (13)
  - Cardiac ablation [Unknown]
  - Corneal operation [Unknown]
  - Carotid endarterectomy [Unknown]
  - Cataract operation [Unknown]
  - Vascular graft [Unknown]
  - Hernia repair [Unknown]
  - Renal impairment [Unknown]
  - Venous occlusion [Unknown]
  - Anaemia [Unknown]
  - Meniscus operation [Unknown]
  - Retinal injury [Unknown]
  - Large intestine polyp [Unknown]
  - Weight decreased [Unknown]

NARRATIVE: CASE EVENT DATE: 2012
